FAERS Safety Report 9854095 (Version 2)
Quarter: 2014Q1

REPORT INFORMATION
  Report Type: Report from Study
  Country: GB (occurrence: GB)
  Receive Date: 20140129
  Receipt Date: 20140129
  Transmission Date: 20141002
  Serious: Yes (Hospitalization)
  Sender: FDA-Public Use
  Company Number: GB-EXELIXIS-XL18413003209

PATIENT
  Age: 74 Year
  Sex: Male
  Weight: 70 kg

DRUGS (8)
  1. XL184 [Suspect]
     Indication: PROSTATE CANCER
     Dosage: 60 MG, QD
     Route: 048
     Dates: start: 20130723, end: 20130827
  2. PLACEBO - P [Suspect]
     Indication: PROSTATE CANCER
     Dosage: 5 MG, BID
     Route: 048
     Dates: start: 20130723, end: 20130827
  3. AMLODIPINE [Concomitant]
  4. PREDNISOLONE [Concomitant]
  5. CASTOR OIL [Concomitant]
  6. ZOLADEX [Concomitant]
  7. RANITIDINE [Concomitant]
  8. LOPERAMIDE [Concomitant]

REACTIONS (1)
  - Gastroenteritis [Recovered/Resolved]
